FAERS Safety Report 8510741-2 (Version None)
Quarter: 2012Q3

REPORT INFORMATION
  Report Type: 
  Country: None (occurrence: None)
  Receive Date: 20120716
  Receipt Date: 20120710
  Transmission Date: 20120928
  Serious: No
  Sender: FDA-Public Use
  Company Number: US-PFIZER INC-2012167311

PATIENT
  Sex: Female
  Weight: 68.027 kg

DRUGS (2)
  1. LYRICA [Suspect]
     Indication: BACK PAIN
     Dosage: 50 MG, 3X/DAY
     Dates: start: 20120701
  2. AMLODIPINE [Concomitant]
     Indication: HYPERTENSION
     Dosage: 10 MG, 1X/DAY

REACTIONS (2)
  - DRY MOUTH [None]
  - OEDEMA PERIPHERAL [None]
